FAERS Safety Report 14035482 (Version 1)
Quarter: 2017Q4

REPORT INFORMATION
  Report Type: Spontaneous
  Country: JP (occurrence: JP)
  Receive Date: 20171003
  Receipt Date: 20171003
  Transmission Date: 20180321
  Serious: Yes (Other)
  Sender: FDA-Public Use
  Company Number: JP-PFIZER INC-2017417963

PATIENT
  Age: 28 Year
  Sex: Female

DRUGS (1)
  1. PROVERA [Suspect]
     Active Substance: MEDROXYPROGESTERONE ACETATE
     Dosage: 15 MG, CYCLIC (14-DAY ON AND 14-DAY OFF)
     Route: 048

REACTIONS (2)
  - Condition aggravated [Unknown]
  - Obesity [Unknown]
